FAERS Safety Report 19745863 (Version 1)
Quarter: 2021Q3

REPORT INFORMATION
  Report Type: Spontaneous
  Country: CN (occurrence: CN)
  Receive Date: 20210825
  Receipt Date: 20210825
  Transmission Date: 20211014
  Serious: Yes (Other)
  Sender: FDA-Public Use
  Company Number: CN-BAUSCH-BL-2021-028441

PATIENT
  Age: 45 Year
  Sex: Female

DRUGS (1)
  1. OFLOXACIN EYE DROPS [Suspect]
     Active Substance: OFLOXACIN
     Indication: CONJUNCTIVITIS
     Route: 047
     Dates: start: 20210801, end: 20210806

REACTIONS (2)
  - Confusional state [Recovered/Resolved]
  - Syncope [Unknown]

NARRATIVE: CASE EVENT DATE: 202108
